FAERS Safety Report 7535008-0 (Version None)
Quarter: 2011Q2

REPORT INFORMATION
  Report Type: 
  Country: None (occurrence: None)
  Receive Date: 20110609
  Receipt Date: 20110604
  Transmission Date: 20111010
  Serious: No
  Sender: FDA-Public Use
  Company Number: US-BIOGENIDEC-2011BI006019

PATIENT
  Sex: Female

DRUGS (3)
  1. TYSABRI [Suspect]
     Indication: MULTIPLE SCLEROSIS
     Route: 042
     Dates: start: 20091005, end: 20110103
  2. TYSABRI [Suspect]
     Route: 042
     Dates: start: 20110411
  3. TYSABRI [Suspect]
     Route: 042
     Dates: start: 20080903, end: 20081216

REACTIONS (8)
  - INSOMNIA [None]
  - HEADACHE [None]
  - VOMITING [None]
  - HYPERSENSITIVITY [None]
  - LETHARGY [None]
  - NASOPHARYNGITIS [None]
  - PYREXIA [None]
  - GAIT DISTURBANCE [None]
